FAERS Safety Report 10223044 (Version 1)
Quarter: 2014Q2

REPORT INFORMATION
  Report Type: Report from Study
  Country: BR (occurrence: BR)
  Receive Date: 20140607
  Receipt Date: 20140607
  Transmission Date: 20141212
  Serious: Yes (Death, Hospitalization, Other)
  Sender: FDA-Public Use
  Company Number: PHHY2014BR068615

PATIENT
  Age: 88 Year
  Sex: Female
  Weight: 105 kg

DRUGS (4)
  1. DIOVAN [Suspect]
     Indication: HYPERTENSION
     Dosage: 1 DF, QD (160 MG), IN THE MORNING
     Route: 048
     Dates: end: 20131209
  2. DIOVAN HCT [Suspect]
     Indication: HYPERTENSION
     Dosage: 1 DF, QD (VALS 160 MG, HCTZ 12.5 MG), AT NIGHT
     Route: 048
     Dates: end: 20131209
  3. SIMVASTATIN [Concomitant]
     Dosage: UNK UKN, UNK
     Dates: end: 201312
  4. EXELON [Concomitant]
     Indication: NERVOUS SYSTEM DISORDER
     Dosage: UNK UKN, UNK
     Dates: start: 201304, end: 201305

REACTIONS (8)
  - Septic shock [Fatal]
  - Pneumonia [Fatal]
  - Renal failure acute [Fatal]
  - General physical health deterioration [Unknown]
  - Kidney infection [Unknown]
  - Pyrexia [Recovered/Resolved]
  - Diabetes mellitus [Unknown]
  - Diabetes mellitus inadequate control [Unknown]
